FAERS Safety Report 9618893 (Version 2)
Quarter: 2013Q4

REPORT INFORMATION
  Report Type: Report from Study
  Country: JP (occurrence: JP)
  Receive Date: 20131014
  Receipt Date: 20131204
  Transmission Date: 20140711
  Serious: Yes (Hospitalization)
  Sender: FDA-Public Use
  Company Number: JP-BAYER-2013-120737

PATIENT
  Age: 44 Year
  Sex: Female
  Weight: 44 kg

DRUGS (8)
  1. STIVARGA [Suspect]
     Indication: RECTAL CANCER
     Dosage: 160 MG, QD ON FOR 3 WEEKS AND OFF FOR 1 WEEK
     Route: 048
     Dates: start: 20130906, end: 20130916
  2. NAUZELIN [Concomitant]
     Indication: PROPHYLAXIS OF NAUSEA AND VOMITING
     Dosage: DAILY DOSE 30 MG
     Route: 048
     Dates: start: 20120819
  3. NAUZELIN [Concomitant]
     Indication: DECREASED APPETITE
  4. URSO [Concomitant]
     Indication: LIVER DISORDER
     Dosage: DAILY DOSE 600 MG
     Route: 048
     Dates: start: 20130905
  5. TAKEPRON [Concomitant]
     Indication: GASTRITIS
     Dosage: DAILY DOSE 15 MG
     Route: 048
     Dates: start: 20120912
  6. NAIXAN [Concomitant]
     Indication: PAIN
     Dosage: DAILY DOSE 300 MG
     Route: 048
     Dates: start: 20130625
  7. NAIXAN [Concomitant]
     Indication: PYREXIA
  8. DUROTEP [Concomitant]
     Indication: PAIN
     Dosage: DAILY DOSE 4.2 MG
     Route: 062
     Dates: start: 20120926

REACTIONS (5)
  - Hepatic function abnormal [Recovered/Resolved]
  - Palmar-plantar erythrodysaesthesia syndrome [Not Recovered/Not Resolved]
  - Mucosal inflammation [Not Recovered/Not Resolved]
  - Ascites [Recovered/Resolved]
  - Oropharyngeal pain [Not Recovered/Not Resolved]
